FAERS Safety Report 11395032 (Version 1)
Quarter: 2015Q3

REPORT INFORMATION
  Report Type: Spontaneous
  Country: US (occurrence: None)
  Receive Date: 20150817
  Receipt Date: 20150817
  Transmission Date: 20151125
  Serious: Yes (Other)
  Sender: FDA-Public Use
  Company Number: US-002158

PATIENT
  Age: 59 Year
  Sex: Female

DRUGS (1)
  1. PARATHYROID HORMONE 50 UG [Suspect]
     Active Substance: PARATHYROID HORMONE
     Indication: HYPOPARATHYROIDISM
     Route: 058
     Dates: start: 20150611, end: 20150629

REACTIONS (1)
  - Hepatic enzyme increased [None]

NARRATIVE: CASE EVENT DATE: 20150629
